FAERS Safety Report 24884382 (Version 1)
Quarter: 2025Q1

REPORT INFORMATION
  Report Type: Spontaneous
  Country: SE (occurrence: SE)
  Receive Date: 20250124
  Receipt Date: 20250124
  Transmission Date: 20250408
  Serious: Yes (Other)
  Sender: NORDIC PHARMA
  Company Number: None

PATIENT
  Age: 67 Year
  Sex: Male

DRUGS (9)
  1. METHOTREXATE SODIUM [Suspect]
     Active Substance: METHOTREXATE SODIUM
     Dates: end: 20241118
  2. OMEPRAZOLE [Concomitant]
     Active Substance: OMEPRAZOLE
  3. Folsyra [Concomitant]
  4. ACETAMINOPHEN [Concomitant]
     Active Substance: ACETAMINOPHEN
  5. PREDNISOLONE [Concomitant]
     Active Substance: PREDNISOLONE
  6. AZARGA [Concomitant]
     Active Substance: BRINZOLAMIDE\TIMOLOL MALEATE
  7. GABAPENTIN [Concomitant]
     Active Substance: GABAPENTIN
  8. KEVZARA [Concomitant]
     Active Substance: SARILUMAB
  9. XALATAN [Concomitant]
     Active Substance: LATANOPROST

REACTIONS (11)
  - Decreased appetite [Unknown]
  - Oral mucosal blistering [Unknown]
  - Iron deficiency anaemia [Unknown]
  - Ear discomfort [Unknown]
  - Serum ferritin increased [Unknown]
  - Nausea [Unknown]
  - Muscular weakness [Unknown]
  - Fatigue [Unknown]
  - Salivary hypersecretion [Unknown]
  - Feeling cold [Unknown]
  - Weight decreased [Unknown]

NARRATIVE: CASE EVENT DATE: 20240101
